FAERS Safety Report 18450782 (Version 1)
Quarter: 2020Q4

REPORT INFORMATION
  Report Type: Spontaneous
  Country: US (occurrence: US)
  Receive Date: 20201102
  Receipt Date: 20201102
  Transmission Date: 20210114
  Serious: Yes (Life-Threatening, Hospitalization, Other)
  Sender: FDA-Public Use
  Company Number: US-FRESENIUS KABI-FK202011342

PATIENT
  Age: 55 Year
  Sex: Female
  Weight: 65.3 kg

DRUGS (4)
  1. DEXAMETHASONE INJECTION (MANUFACTURER UNKNOWN) [Suspect]
     Active Substance: DEXAMETHASONE
     Indication: LOCALISED OEDEMA
  2. RUXOLITINIB [Suspect]
     Active Substance: RUXOLITINIB
     Indication: COVID-19
     Dosage: REGIMEN 2, DOSE OF 5 MILLIGRAM
     Route: 048
     Dates: start: 20200602, end: 20200611
  3. DEXAMETHASONE INJECTION (MANUFACTURER UNKNOWN) [Suspect]
     Active Substance: DEXAMETHASONE
     Indication: MACROGLOSSIA
     Dates: start: 20200609, end: 20200614
  4. RUXOLITINIB [Suspect]
     Active Substance: RUXOLITINIB
     Indication: ACUTE RESPIRATORY DISTRESS SYNDROME
     Dosage: REGIMEN 1, DOSE OF 15 MILLIGRAM
     Route: 048
     Dates: start: 20200529, end: 20200602

REACTIONS (3)
  - Strongyloidiasis [Recovered/Resolved]
  - Acidosis [Recovered/Resolved]
  - Hypoxia [Unknown]

NARRATIVE: CASE EVENT DATE: 20200616
